FAERS Safety Report 21669332 (Version 3)
Quarter: 2023Q2

REPORT INFORMATION
  Report Type: Spontaneous
  Country: US (occurrence: US)
  Receive Date: 20221201
  Receipt Date: 20230509
  Transmission Date: 20230721
  Serious: Yes (Disabling, Other)
  Sender: FDA-Public Use
  Company Number: US-SA-SAC20221130000205

PATIENT
  Age: 64 Year
  Sex: Female

DRUGS (1)
  1. AUBAGIO [Suspect]
     Active Substance: TERIFLUNOMIDE
     Indication: Multiple sclerosis
     Dosage: 14 MG, QD
     Route: 048
     Dates: start: 202008

REACTIONS (7)
  - Impaired work ability [Unknown]
  - Multiple sclerosis relapse [Unknown]
  - Pain [Unknown]
  - Mood altered [Unknown]
  - Gait disturbance [Unknown]
  - Sleep disorder [Unknown]
  - Decreased activity [Unknown]

NARRATIVE: CASE EVENT DATE: 20221001
